FAERS Safety Report 11793172 (Version 1)
Quarter: 2015Q4

REPORT INFORMATION
  Report Type: Spontaneous
  Country: US (occurrence: None)
  Receive Date: 20151201
  Receipt Date: 20151201
  Transmission Date: 20160305
  Serious: Yes (Death)
  Sender: FDA-Public Use
  Company Number: None

PATIENT
  Age: 87 Year
  Sex: Male
  Weight: 121 kg

DRUGS (3)
  1. VANCOMYCIN 1GM/20ML UNKNOWN [Suspect]
     Active Substance: VANCOMYCIN
     Indication: INCISION SITE INFECTION
     Dosage: 1.25 GM Q36HRS INTRAVENOUS
     Route: 042
     Dates: start: 20151118, end: 20151123
  2. SULFAMETHOXAZOLE-TRIMETHOPRIM [Concomitant]
     Active Substance: SULFAMETHOXAZOLE\TRIMETHOPRIM
  3. FUROSEMIDE. [Concomitant]
     Active Substance: FUROSEMIDE

REACTIONS (2)
  - Nephropathy toxic [None]
  - Cardio-respiratory arrest [None]

NARRATIVE: CASE EVENT DATE: 20151124
